FAERS Safety Report 12126223 (Version 2)
Quarter: 2017Q3

REPORT INFORMATION
  Report Type: Spontaneous
  Country: US (occurrence: US)
  Receive Date: 20160229
  Receipt Date: 20170905
  Transmission Date: 20171127
  Serious: Yes (Hospitalization, Other)
  Sender: FDA-Public Use
  Company Number: US-SUN PHARMACEUTICAL INDUSTRIES LTD-2016US-112147

PATIENT
  Age: 54 Year
  Sex: Female

DRUGS (13)
  1. NYSTATIN. [Concomitant]
     Active Substance: NYSTATIN
     Dosage: 100,000 UNITS/ML, 5 ML (EVERY 6 HOURS)
     Route: 048
  2. RANITIDINE. [Concomitant]
     Active Substance: RANITIDINE
     Dosage: 150 MG, DAILY
     Route: 048
  3. FLUCONAZOLE. [Suspect]
     Active Substance: FLUCONAZOLE
     Indication: ANTIFUNGAL TREATMENT
     Dosage: 200 MG, DAILY
     Route: 048
  4. MYCOPHENOLATE MOFETIL. [Interacting]
     Active Substance: MYCOPHENOLATE MOFETIL
     Indication: IMMUNOSUPPRESSION
     Dosage: 1080 MG (EVERY 12 HOURS)
     Route: 048
  5. TAMOXIFEN [Concomitant]
     Active Substance: TAMOXIFEN
     Dosage: 20 MG, DAILY
     Route: 048
  6. DOCUSATE [Concomitant]
     Active Substance: DOCUSATE
     Dosage: 100 MG (EVERY 8 HOURS)
     Route: 048
  7. TACROLIMUS. [Interacting]
     Active Substance: TACROLIMUS
     Indication: IMMUNOSUPPRESSION
     Dosage: 10 MG
     Route: 048
  8. OXYCODONE AND ACETAMINOPHEN [Concomitant]
     Active Substance: ACETAMINOPHEN\OXYCODONE HYDROCHLORIDE
     Dosage: 325 MG-5 MG (EVERY 4-6 HOURS AS NEEDED (PRN))
  9. TACROLIMUS. [Interacting]
     Active Substance: TACROLIMUS
     Dosage: 8 MG (EVERY 12 HOURS)
     Route: 048
  10. VALGANCICLOVIR HCL [Concomitant]
     Dosage: 450 MG, DAILY
     Route: 048
  11. FLUCONAZOLE. [Suspect]
     Active Substance: FLUCONAZOLE
     Indication: ANTIFUNGAL TREATMENT
     Dosage: 400 MG 24 HOURS FOR 3 DAYS
     Route: 042
  12. SULFAMETHOXAZOLE/TRIMETHOPRIM [Concomitant]
     Active Substance: SULFAMETHOXAZOLE\TRIMETHOPRIM
     Dosage: 400 MG-80 MG (DAILY)
     Route: 048
  13. MYCOPHENOLATE MOFETIL. [Interacting]
     Active Substance: MYCOPHENOLATE MOFETIL
     Dosage: 360 MG, DAILY

REACTIONS (5)
  - Leukopenia [Unknown]
  - Drug ineffective [Unknown]
  - Drug interaction [Unknown]
  - Mouth ulceration [Recovered/Resolved]
  - Mucosal toxicity [Unknown]
